FAERS Safety Report 15792639 (Version 2)
Quarter: 2019Q1

REPORT INFORMATION
  Report Type: Spontaneous
  Country: US (occurrence: US)
  Receive Date: 20190107
  Receipt Date: 20190312
  Transmission Date: 20190417
  Serious: No
  Sender: FDA-Public Use
  Company Number: US-009507513-1901USA000427

PATIENT
  Sex: Female

DRUGS (1)
  1. CELESTONE SOLUSPAN [Suspect]
     Active Substance: BETAMETHASONE ACETATE\BETAMETHASONE SODIUM PHOSPHATE
     Dosage: 2 DOSES OF 12 MILLIGRAM 24 HOURS APART BETWEEN 34/0 AND 36/6 WEEKS
     Route: 030

REACTIONS (1)
  - Maternal exposure during pregnancy [Unknown]
